FAERS Safety Report 4715171-7 (Version None)
Quarter: 2005Q3

REPORT INFORMATION
  Report Type: 
  Country: None (occurrence: None)
  Receive Date: 20050715
  Receipt Date: 20050708
  Transmission Date: 20060218
  Serious: Yes (Hospitalization)
  Sender: FDA-Public Use
  Company Number: 409541

PATIENT
  Age: 64 Year
  Sex: Male

DRUGS (7)
  1. DILATREND [Suspect]
     Indication: DRUG USE FOR UNKNOWN INDICATION
     Dosage: 3.125MG PER DAY
     Route: 048
     Dates: end: 20050525
  2. OMEPRAZOLE [Concomitant]
  3. ASPIRIN [Concomitant]
  4. RAMIPRIL [Concomitant]
  5. TORSEMIDE [Concomitant]
  6. ATORVASTATIN CALCIUM [Concomitant]
  7. ACENOCOUMAROL [Concomitant]

REACTIONS (4)
  - CARDIAC FAILURE [None]
  - DYSPNOEA EXACERBATED [None]
  - ORTHOPNOEA [None]
  - SINUS BRADYCARDIA [None]
